FAERS Safety Report 14673442 (Version 1)
Quarter: 2018Q1

REPORT INFORMATION
  Report Type: Spontaneous
  Country: US (occurrence: US)
  Receive Date: 20180322
  Receipt Date: 20180322
  Transmission Date: 20180509
  Serious: Yes (Hospitalization)
  Sender: FDA-Public Use
  Company Number: None

PATIENT
  Sex: Male

DRUGS (9)
  1. NORDITROPIN [Suspect]
     Active Substance: SOMATROPIN
     Indication: HYPERPITUITARISM
     Route: 058
     Dates: start: 20130320
  2. A-HYDROCORT [Concomitant]
     Active Substance: HYDROCORTISONE SODIUM SUCCINATE
  3. LOPRESSOR [Concomitant]
     Active Substance: METOPROLOL TARTRATE
  4. DIOVAN [Concomitant]
     Active Substance: VALSARTAN
  5. VITAMIN D [Concomitant]
     Active Substance: CHOLECALCIFEROL
  6. NEXIUM [Concomitant]
     Active Substance: ESOMEPRAZOLE MAGNESIUM
  7. VITAMINS NOS [Concomitant]
     Active Substance: VITAMINS
  8. DRISDOL [Concomitant]
     Active Substance: ERGOCALCIFEROL
  9. CALTRATE WITH VITAMIN D [Concomitant]
     Active Substance: CALCIUM CARBONATE\CHOLECALCIFEROL

REACTIONS (2)
  - Drug dose omission [None]
  - Cardiac disorder [None]
